FAERS Safety Report 21948837 (Version 1)
Quarter: 2023Q1

REPORT INFORMATION
  Report Type: Report from Study
  Country: ES (occurrence: ES)
  Receive Date: 20230203
  Receipt Date: 20230203
  Transmission Date: 20230418
  Serious: Yes (Death, Hospitalization)
  Sender: FDA-Public Use
  Company Number: ES-ORPHANEU-2012000001

PATIENT

DRUGS (3)
  1. CYSTADANE [Suspect]
     Active Substance: BETAINE
     Indication: Cystathionine beta-synthase deficiency
     Dosage: 3000 MG, BID
     Route: 048
     Dates: start: 20070822, end: 20070831
  2. VITAMIN B6 [Concomitant]
     Active Substance: PYRIDOXINE HYDROCHLORIDE
     Dosage: 300 MG, TID
     Dates: start: 20070821, end: 20070831
  3. FOLIC ACID [Concomitant]
     Active Substance: FOLIC ACID
     Dosage: 5 MG, QD
     Dates: start: 20070821, end: 20070831

REACTIONS (5)
  - Depressed level of consciousness [Fatal]
  - Intracranial pressure increased [Fatal]
  - Brain oedema [Fatal]
  - Septic shock [Fatal]
  - Hypertonia [Fatal]

NARRATIVE: CASE EVENT DATE: 20070822
